FAERS Safety Report 20172221 (Version 2)
Quarter: 2021Q4

REPORT INFORMATION
  Report Type: Spontaneous
  Country: US (occurrence: US)
  Receive Date: 20211210
  Receipt Date: 20211210
  Transmission Date: 20220304
  Serious: No
  Sender: FDA-Public Use
  Company Number: US-NOVOPROD-828499

PATIENT
  Age: 56 Year
  Sex: Female

DRUGS (2)
  1. LEVEMIR [Suspect]
     Active Substance: INSULIN DETEMIR
     Indication: Latent autoimmune diabetes in adults
     Dosage: MORE THAN 30 UNIT TWICE A DAY
     Route: 058
     Dates: start: 202011
  2. LEVEMIR [Suspect]
     Active Substance: INSULIN DETEMIR
     Indication: Latent autoimmune diabetes in adults
     Dosage: UNK
     Route: 065

REACTIONS (6)
  - Contusion [Unknown]
  - Contusion [Not Recovered/Not Resolved]
  - Blood glucose increased [Not Recovered/Not Resolved]
  - Injection site mass [Not Recovered/Not Resolved]
  - Device delivery system issue [Unknown]
  - Device failure [Unknown]

NARRATIVE: CASE EVENT DATE: 20210101
